FAERS Safety Report 8609948-5 (Version None)
Quarter: 2012Q3

REPORT INFORMATION
  Report Type: 
  Country: None (occurrence: None)
  Receive Date: 20120821
  Receipt Date: 20100423
  Transmission Date: 20120928
  Serious: Yes (Death, Hospitalization)
  Sender: FDA-Public Use
  Company Number: PHHY2010GT094410

PATIENT
  Sex: Female

DRUGS (1)
  1. IMATINIB MESYLATE [Suspect]
     Dosage: UNK
     Dates: start: 20100113

REACTIONS (3)
  - RESPIRATORY ARREST [None]
  - ABDOMINAL DISCOMFORT [None]
  - MALAISE [None]
